APPROVED DRUG PRODUCT: EVRYSDI
Active Ingredient: RISDIPLAM
Strength: 0.75MG/ML
Dosage Form/Route: FOR SOLUTION;ORAL
Application: N213535 | Product #001
Applicant: GENENTECH INC
Approved: Aug 7, 2020 | RLD: Yes | RS: Yes | Type: RX

PATENTS:
Patent 11827646 | Expires: Jan 25, 2036
Patent 12350273 | Expires: Oct 1, 2038
Patent 11534444 | Expires: Oct 4, 2038
Patent 9969754 | Expires: May 11, 2035
Patent 12122789 | Expires: Apr 15, 2041
Patent 11938136 | Expires: Nov 8, 2036
Patent 9586955 | Expires: Feb 8, 2033

EXCLUSIVITY:
Code: M-270 | Date: Oct 3, 2026
Code: ODE-334 | Date: Aug 7, 2027
Code: ODE-400 | Date: May 27, 2029